FAERS Safety Report 11411066 (Version 1)
Quarter: 2015Q3

REPORT INFORMATION
  Report Type: Report from Study
  Country: AU (occurrence: AU)
  Receive Date: 20150824
  Receipt Date: 20150824
  Transmission Date: 20151125
  Serious: Yes (Hospitalization)
  Sender: FDA-Public Use
  Company Number: AU-ALEXION PHARMACEUTICALS INC.-A201503108

PATIENT
  Age: 56 Year

DRUGS (15)
  1. FERROUS SULFATE [Concomitant]
     Active Substance: FERROUS SULFATE\FERROUS SULFATE, DRIED
     Indication: SUPPLEMENTATION THERAPY
     Dosage: UNK
     Route: 048
     Dates: start: 20150411
  2. BACTRIM [Concomitant]
     Active Substance: SULFAMETHOXAZOLE\TRIMETHOPRIM
     Indication: PROPHYLAXIS
     Dosage: UNK
     Route: 048
     Dates: start: 20150328
  3. AMLODIPINE [Concomitant]
     Active Substance: AMLODIPINE BESYLATE
     Indication: HYPERTENSION
     Dosage: 5 MG, QD
     Route: 048
     Dates: start: 20150329, end: 20150723
  4. AMLODIPINE [Concomitant]
     Active Substance: AMLODIPINE BESYLATE
     Dosage: 10 MG, QD
     Route: 048
     Dates: start: 20150724
  5. TACROLIMUS. [Concomitant]
     Active Substance: TACROLIMUS
     Indication: PROPHYLAXIS
     Dosage: UNK
     Route: 048
     Dates: start: 20150327
  6. PREDNISOLONE. [Concomitant]
     Active Substance: PREDNISOLONE
     Indication: PROPHYLAXIS
     Dosage: UNK
     Route: 048
     Dates: start: 20150328
  7. MAGNESIUM ASPARTATE [Concomitant]
     Active Substance: MAGNESIUM ASPARTATE
     Indication: MINERAL SUPPLEMENTATION
     Dosage: UNK
     Route: 048
     Dates: start: 20150327
  8. RISEDRONATE [Concomitant]
     Active Substance: RISEDRONATE SODIUM
     Indication: SUPPLEMENTATION THERAPY
     Dosage: UNK
     Route: 042
  9. MYCOPHENOLATE SODIUM [Concomitant]
     Active Substance: MYCOPHENOLATE SODIUM
     Indication: PROPHYLAXIS
     Dosage: UNK
     Route: 048
     Dates: start: 20150327
  10. PANTOPRAZOLE [Concomitant]
     Active Substance: PANTOPRAZOLE SODIUM
     Indication: PROPHYLAXIS
     Dosage: UNK
     Route: 048
     Dates: start: 20150403
  11. METHYLPREDNISOLONE. [Concomitant]
     Active Substance: METHYLPREDNISOLONE
     Indication: RENAL IMPAIRMENT
     Dosage: UNK
     Route: 042
     Dates: start: 20150723
  12. CHOLECALCIFEROL [Concomitant]
     Active Substance: CHOLECALCIFEROL
     Indication: SUPPLEMENTATION THERAPY
     Dosage: UNK
     Route: 048
     Dates: start: 20150328
  13. ECULIZUMAB [Suspect]
     Active Substance: ECULIZUMAB
     Indication: HAEMOLYTIC URAEMIC SYNDROME
     Dosage: 1200 MG, QW
     Route: 042
     Dates: start: 20150402
  14. ECULIZUMAB [Suspect]
     Active Substance: ECULIZUMAB
     Dosage: 1200 MG, QW
     Route: 042
  15. ASPIRIN                            /00002701/ [Concomitant]
     Active Substance: ASPIRIN
     Indication: PROPHYLAXIS
     Dosage: UNK
     Route: 048

REACTIONS (1)
  - Sepsis [Unknown]

NARRATIVE: CASE EVENT DATE: 20150801
